FAERS Safety Report 12993536 (Version 2)
Quarter: 2016Q4

REPORT INFORMATION
  Report Type: Spontaneous
  Country: US (occurrence: US)
  Receive Date: 20161202
  Receipt Date: 20161212
  Transmission Date: 20170207
  Serious: Yes (Other)
  Sender: FDA-Public Use
  Company Number: US-PFIZER INC-2016545312

PATIENT
  Age: 65 Year
  Sex: Female
  Weight: 51 kg

DRUGS (4)
  1. IBRANCE [Suspect]
     Active Substance: PALBOCICLIB
     Dosage: 125 MG, CYCLIC (D1-21 Q 28 DAYS)
     Route: 048
     Dates: start: 20161108, end: 20161122
  2. CARBOPLATIN. [Concomitant]
     Active Substance: CARBOPLATIN
     Dosage: UNK, CYCLIC (FOR 3 WEEKS ON AND 1 WEEK OFF)
  3. IBRANCE [Suspect]
     Active Substance: PALBOCICLIB
     Indication: BREAST CANCER METASTATIC
     Dosage: 125 MG, CYCLIC (D1-21 Q 28 DAYS)
     Route: 048
     Dates: start: 20161008, end: 20161022
  4. TAXOL [Concomitant]
     Active Substance: PACLITAXEL
     Dosage: UNK, CYCLIC (3 WEEKS ON AND 1 WEEK OFF)

REACTIONS (8)
  - Thyroid cancer [Unknown]
  - Second primary malignancy [Unknown]
  - Vomiting [Unknown]
  - Nausea [Unknown]
  - Dehydration [Not Recovered/Not Resolved]
  - Malabsorption [Unknown]
  - Diarrhoea [Not Recovered/Not Resolved]
  - Abdominal pain upper [Unknown]
